FAERS Safety Report 13464434 (Version 1)
Quarter: 2017Q2

REPORT INFORMATION
  Report Type: Spontaneous
  Country: US (occurrence: US)
  Receive Date: 20170420
  Receipt Date: 20170420
  Transmission Date: 20170830
  Serious: Yes (Hospitalization, Other)
  Sender: FDA-Public Use
  Company Number: US-ROCHE-432842

PATIENT
  Age: 23 Year
  Sex: Male
  Weight: 77.1 kg

DRUGS (3)
  1. ACCUTANE [Suspect]
     Active Substance: ISOTRETINOIN
     Indication: ACNE
     Route: 048
     Dates: start: 20000203, end: 20000630
  2. ERYTHROCIN [Concomitant]
     Active Substance: ERYTHROMYCIN LACTOBIONATE
     Indication: ACNE
     Route: 048
     Dates: start: 20000203, end: 20000630
  3. VITAMIN E [Concomitant]
     Active Substance: .ALPHA.-TOCOPHEROL
     Route: 048

REACTIONS (7)
  - Epistaxis [Recovered/Resolved]
  - Colitis ulcerative [Recovering/Resolving]
  - Anaemia [Not Recovered/Not Resolved]
  - Inflammatory bowel disease [Unknown]
  - Dry skin [Recovered/Resolved]
  - Epididymal cyst [Unknown]
  - Crohn^s disease [Unknown]

NARRATIVE: CASE EVENT DATE: 200003
